FAERS Safety Report 5405169-8 (Version None)
Quarter: 2007Q3

REPORT INFORMATION
  Report Type: 
  Country: None (occurrence: None)
  Receive Date: 20070803
  Receipt Date: 20070724
  Transmission Date: 20080115
  Serious: Yes (Other)
  Sender: FDA-Public Use
  Company Number: US-SANOFI-SYNTHELABO-A03200702295

PATIENT
  Sex: Female

DRUGS (4)
  1. AMBIEN [Suspect]
     Indication: INSOMNIA
     Route: 048
     Dates: start: 20020903, end: 20021002
  2. LIPITOR [Concomitant]
     Route: 048
  3. ESTRADERM [Concomitant]
     Route: 062
  4. ALCOHOL [Concomitant]
     Route: 048

REACTIONS (7)
  - AMNESIA [None]
  - COMPLEX PARTIAL SEIZURES [None]
  - DIPLOPIA [None]
  - ROAD TRAFFIC ACCIDENT [None]
  - SOMNAMBULISM [None]
  - URINARY INCONTINENCE [None]
  - VERTIGO [None]
